FAERS Safety Report 6207845-6 (Version None)
Quarter: 2009Q2

REPORT INFORMATION
  Report Type: 
  Country: None (occurrence: None)
  Receive Date: 20090522
  Receipt Date: 20090507
  Transmission Date: 20091009
  Serious: Yes (Other)
  Sender: FDA-Public Use
  Company Number: 2009S1008083

PATIENT
  Age: 38 Year
  Sex: Male
  Weight: 92 kg

DRUGS (6)
  1. MIRTAZAPINE [Suspect]
     Indication: DEPRESSION
     Dosage: 15 MG;DAILY;ORAL ; 30 MG;DAILY;ORAL
     Route: 048
     Dates: start: 20090325, end: 20090414
  2. MIRTAZAPINE [Suspect]
     Indication: DEPRESSION
     Dosage: 15 MG;DAILY;ORAL ; 30 MG;DAILY;ORAL
     Route: 048
     Dates: start: 20090415, end: 20090427
  3. DIHYDROCODEINE BITARTRATE INJ [Concomitant]
  4. FLOXACILLIN SODIUM [Concomitant]
  5. IBUPROFEN [Concomitant]
  6. ZOPICLONE [Concomitant]

REACTIONS (4)
  - CONDITION AGGRAVATED [None]
  - FALL [None]
  - PORPHYRIA ACUTE [None]
  - PSORIASIS [None]
